FAERS Safety Report 9507888 (Version 3)
Quarter: 2013Q3

REPORT INFORMATION
  Report Type: Spontaneous
  Country: US (occurrence: US)
  Receive Date: 20130909
  Receipt Date: 20130910
  Transmission Date: 20140515
  Serious: Yes (Death)
  Sender: FDA-Public Use
  Company Number: US-PFIZER INC-2013250027

PATIENT
  Age: 68 Year
  Sex: Male

DRUGS (17)
  1. LYRICA [Suspect]
     Dosage: 100 MG, 3X/DAY
  2. PROTONIX [Suspect]
     Dosage: 40 MG, 1X/DAY
  3. TAMSULOSIN [Concomitant]
     Dosage: UNK
  4. LORTAB [Concomitant]
     Dosage: UNK
  5. ASPIRIN [Concomitant]
     Dosage: UNK
  6. LEVEMIR [Concomitant]
     Dosage: UNK
  7. NOVOLOG [Concomitant]
     Dosage: UNK
  8. PROVENTIL HFA [Concomitant]
     Dosage: UNK
  9. SPIRONOLACTONE [Concomitant]
     Dosage: UNK
  10. ATORVASTATIN [Concomitant]
     Dosage: UNK
  11. CARVEDILOL [Concomitant]
     Dosage: UNK
  12. HYDRALAZINE [Concomitant]
     Dosage: UNK
  13. IMDUR [Concomitant]
     Dosage: UNK
  14. LEVOTHYROXINE [Concomitant]
     Dosage: UNK
  15. PAROXETINE [Concomitant]
     Dosage: UNK
  16. POTASSIUM CHLORIDE [Concomitant]
     Dosage: UNK
  17. TORSEMIDE [Concomitant]
     Dosage: UNK

REACTIONS (1)
  - Death [Fatal]
